FAERS Safety Report 23057335 (Version 2)
Quarter: 2023Q4

REPORT INFORMATION
  Report Type: Spontaneous
  Country: US (occurrence: None)
  Receive Date: 20231012
  Receipt Date: 20231122
  Transmission Date: 20240110
  Serious: No
  Sender: FDA-Public Use
  Company Number: 2023A227368

PATIENT
  Sex: Female

DRUGS (1)
  1. SYMBICORT [Suspect]
     Active Substance: BUDESONIDE\FORMOTEROL FUMARATE DIHYDRATE
     Dosage: 80/4.5 MCG 120 INHALATIONS UNKNOWN
     Route: 055

REACTIONS (4)
  - Eye disorder [Unknown]
  - Device use issue [Unknown]
  - Product dose omission issue [Unknown]
  - Device delivery system issue [Unknown]
